FAERS Safety Report 19236153 (Version 4)
Quarter: 2021Q2

REPORT INFORMATION
  Report Type: Report from Study
  Country: None (occurrence: TW)
  Receive Date: 20210510
  Receipt Date: 20210610
  Transmission Date: 20210717
  Serious: Yes (Hospitalization, Other)
  Sender: FDA-Public Use
  Company Number: TW-ABBVIE-21K-153-3896373-00

PATIENT
  Age: 51 Year
  Sex: Female

DRUGS (144)
  1. IBRUTINIB [Suspect]
     Active Substance: IBRUTINIB
     Route: 048
     Dates: start: 20200417, end: 20200528
  2. IBRUTINIB [Suspect]
     Active Substance: IBRUTINIB
     Route: 048
     Dates: start: 20200529, end: 20200611
  3. VFEND [Concomitant]
     Active Substance: VORICONAZOLE
     Route: 048
     Dates: start: 20191127, end: 20191211
  4. GRANOCYTE [Concomitant]
     Active Substance: LENOGRASTIM
     Indication: HYPOGAMMAGLOBULINAEMIA
     Dates: start: 20191015, end: 20191018
  5. GRANOCYTE [Concomitant]
     Active Substance: LENOGRASTIM
     Indication: PROPHYLAXIS
     Route: 065
     Dates: start: 20191021, end: 20191021
  6. GRANOCYTE [Concomitant]
     Active Substance: LENOGRASTIM
     Route: 058
     Dates: start: 20200529, end: 20200529
  7. GRANOCYTE [Concomitant]
     Active Substance: LENOGRASTIM
     Route: 058
     Dates: start: 20200703, end: 20200704
  8. MEDROL [Concomitant]
     Active Substance: METHYLPREDNISOLONE
     Indication: PROPHYLAXIS
     Route: 042
     Dates: start: 20191025, end: 20191027
  9. R EPOCH [Concomitant]
     Active Substance: CYCLOPHOSPHAMIDE\DOXORUBICIN\ETOPOSIDE\PREDNISONE\RITUXIMAB\VINCRISTINE
     Indication: CHRONIC LYMPHOCYTIC LEUKAEMIA
     Route: 065
     Dates: start: 20190921, end: 201911
  10. BAKTAR [Concomitant]
     Active Substance: SULFAMETHOXAZOLE\TRIMETHOPRIM
     Route: 065
     Dates: start: 20191030, end: 20200416
  11. VALTREX [Concomitant]
     Active Substance: VALACYCLOVIR HYDROCHLORIDE
     Route: 048
     Dates: start: 20200214, end: 20200416
  12. B.C. [Concomitant]
     Indication: PROPHYLAXIS
     Dosage: 1 CAP
     Route: 048
     Dates: start: 20191030, end: 20200416
  13. DORISON [DEXAMETHASONE] [Concomitant]
     Route: 048
     Dates: start: 20191113, end: 20191113
  14. FOLIC ACID. [Concomitant]
     Active Substance: FOLIC ACID
     Route: 048
     Dates: start: 20210409
  15. ALPRAZOLAM. [Concomitant]
     Active Substance: ALPRAZOLAM
     Indication: PROPHYLAXIS
     Route: 048
     Dates: start: 20200417
  16. SANDIMMUN NEORAL [Concomitant]
     Active Substance: CYCLOSPORINE
     Indication: PROPHYLAXIS
     Route: 048
     Dates: start: 20200417, end: 20200423
  17. SANDIMMUN NEORAL [Concomitant]
     Active Substance: CYCLOSPORINE
     Route: 048
     Dates: start: 20200605, end: 20200611
  18. SANDIMMUN NEORAL [Concomitant]
     Active Substance: CYCLOSPORINE
     Route: 048
     Dates: start: 20200619, end: 20200716
  19. FILGRASTIM [Concomitant]
     Active Substance: FILGRASTIM
     Indication: PRODUCT USED FOR UNKNOWN INDICATION
     Route: 058
     Dates: start: 20200501, end: 20200501
  20. IMMUNOGLOBULIN HUMAN [Concomitant]
     Active Substance: HUMAN IMMUNOGLOBULIN G
     Indication: PRODUCT USED FOR UNKNOWN INDICATION
     Dates: start: 20200522, end: 20200522
  21. METHYCOBAL [Concomitant]
     Active Substance: METHYLCOBALAMIN
     Indication: PROPHYLAXIS
     Route: 048
     Dates: start: 20201222, end: 20210107
  22. FAMVIR [Concomitant]
     Active Substance: FAMCICLOVIR
     Indication: PRODUCT USED FOR UNKNOWN INDICATION
     Route: 065
     Dates: start: 202003, end: 202003
  23. NIVOLUMAB [Concomitant]
     Active Substance: NIVOLUMAB
     Indication: NEOPLASM
     Dosage: C1D1
     Dates: start: 20200918
  24. IBRUTINIB [Suspect]
     Active Substance: IBRUTINIB
     Route: 048
     Dates: start: 20200619, end: 20200702
  25. GRANOCYTE [Concomitant]
     Active Substance: LENOGRASTIM
     Route: 058
     Dates: start: 20200417, end: 20200417
  26. GRANOCYTE [Concomitant]
     Active Substance: LENOGRASTIM
     Route: 058
     Dates: start: 20200605, end: 20200605
  27. GRANOCYTE [Concomitant]
     Active Substance: LENOGRASTIM
     Route: 058
     Dates: start: 20200612, end: 20200612
  28. GRANOCYTE [Concomitant]
     Active Substance: LENOGRASTIM
     Route: 058
     Dates: start: 20201225, end: 20201225
  29. TEARS NATURALE [DEXTRAN 70;HYPROMELLOSE] [Concomitant]
     Indication: PROPHYLAXIS
     Dosage: 1 / GTT / OU / PRN
     Route: 047
     Dates: start: 20190926, end: 20191121
  30. VALTREX [Concomitant]
     Active Substance: VALACYCLOVIR HYDROCHLORIDE
     Indication: PRODUCT USED FOR UNKNOWN INDICATION
     Route: 048
     Dates: start: 20200207, end: 20200213
  31. VALTREX [Concomitant]
     Active Substance: VALACYCLOVIR HYDROCHLORIDE
     Route: 048
     Dates: start: 20200417, end: 20200716
  32. DORISON [DEXAMETHASONE] [Concomitant]
     Route: 048
     Dates: start: 20200207, end: 20200207
  33. TETRACYCLINE [Concomitant]
     Active Substance: TETRACYCLINE
     Indication: PRODUCT USED FOR UNKNOWN INDICATION
     Route: 065
     Dates: start: 20191106, end: 20191112
  34. ARTELAC [ACETYLSALICYLIC ACID] [Concomitant]
     Active Substance: ASPIRIN
     Indication: PRODUCT USED FOR UNKNOWN INDICATION
     Dosage: 10/ML/BTL
     Route: 047
     Dates: start: 20191106, end: 20191112
  35. ARTELAC [ACETYLSALICYLIC ACID] [Concomitant]
     Active Substance: ASPIRIN
     Route: 047
     Dates: start: 20200424, end: 20200430
  36. VENETOCLAX. [Concomitant]
     Active Substance: VENETOCLAX
     Indication: CHRONIC LYMPHOCYTIC LEUKAEMIA
     Route: 048
     Dates: start: 20191106
  37. VENETOCLAX. [Concomitant]
     Active Substance: VENETOCLAX
     Dosage: 50?}100?}50 / MG
     Route: 048
  38. MABTHERA SC [Concomitant]
     Route: 058
     Dates: start: 20200207, end: 20200207
  39. DIFLUCAN [Concomitant]
     Active Substance: FLUCONAZOLE
     Indication: PROPHYLAXIS
     Route: 048
     Dates: start: 20200207
  40. FOLIC ACID. [Concomitant]
     Active Substance: FOLIC ACID
     Indication: PRODUCT USED FOR UNKNOWN INDICATION
     Route: 048
     Dates: start: 20200417, end: 20200507
  41. SANDIMMUN NEORAL [Concomitant]
     Active Substance: CYCLOSPORINE
     Route: 048
     Dates: start: 20200612, end: 20200618
  42. ZADITEN [Concomitant]
     Active Substance: KETOTIFEN FUMARATE
     Route: 047
     Dates: start: 20200619
  43. TRAMAL RETARD [Concomitant]
     Active Substance: TRAMADOL
     Indication: PROPHYLAXIS
     Route: 048
     Dates: start: 20201222, end: 20201226
  44. GEMMIS [Concomitant]
     Indication: CHRONIC LYMPHOCYTIC LEUKAEMIA
     Dates: start: 20210114, end: 20210114
  45. RITUXIMAB. [Concomitant]
     Active Substance: RITUXIMAB
     Indication: LYMPHOCYTIC LEUKAEMIA
  46. IBRUTINIB [Suspect]
     Active Substance: IBRUTINIB
     Route: 048
     Dates: start: 20200828
  47. IMMUNOGLOBULIN HUMAN NORMAL [Concomitant]
     Active Substance: HUMAN IMMUNOGLOBULIN G
     Indication: PRODUCT USED FOR UNKNOWN INDICATION
     Route: 042
     Dates: start: 20191016, end: 20191017
  48. ACYCLOVIR [ACICLOVIR] [Concomitant]
     Active Substance: ACYCLOVIR
     Route: 042
     Dates: start: 20191014, end: 20191026
  49. VFEND [Concomitant]
     Active Substance: VORICONAZOLE
     Indication: PROPHYLAXIS
     Dosage: 0.5
     Route: 048
     Dates: start: 20191018, end: 20191024
  50. MYCOSTATIN [Concomitant]
     Active Substance: NYSTATIN
     Route: 048
     Dates: start: 20191113, end: 20191119
  51. BAKTAR [Concomitant]
     Active Substance: SULFAMETHOXAZOLE\TRIMETHOPRIM
     Route: 065
     Dates: start: 20210409, end: 20210416
  52. BAKTAR [Concomitant]
     Active Substance: SULFAMETHOXAZOLE\TRIMETHOPRIM
     Route: 065
     Dates: start: 20200417
  53. VALTREX [Concomitant]
     Active Substance: VALACYCLOVIR HYDROCHLORIDE
     Route: 048
     Dates: start: 20210409
  54. B.C. [Concomitant]
     Dosage: 1 CAP
     Route: 048
     Dates: start: 20201222
  55. DURATEARS FREE [Concomitant]
     Indication: PRODUCT USED FOR UNKNOWN INDICATION
     Dates: start: 20191106, end: 20191112
  56. PARAMOL [PARACETAMOL] [Concomitant]
     Indication: PROPHYLAXIS
     Route: 048
     Dates: start: 20191113, end: 20191113
  57. PREDONINE [Concomitant]
     Active Substance: PREDNISOLONE
     Indication: PRODUCT USED FOR UNKNOWN INDICATION
     Route: 048
     Dates: start: 20200717
  58. FEBURIC [Concomitant]
     Active Substance: FEBUXOSTAT
     Indication: PRODUCT USED FOR UNKNOWN INDICATION
     Route: 065
     Dates: start: 20201124, end: 20201130
  59. ACTEMRA [Concomitant]
     Active Substance: TOCILIZUMAB
     Indication: PRODUCT USED FOR UNKNOWN INDICATION
     Route: 065
     Dates: start: 202003, end: 202003
  60. DAILYCARE ACTIBEST [Concomitant]
     Indication: PRODUCT USED FOR UNKNOWN INDICATION
     Route: 065
     Dates: start: 202003, end: 202003
  61. PEGINTERFERON ALFA?2A. [Concomitant]
     Active Substance: PEGINTERFERON ALFA-2A
     Indication: NASOPHARYNGEAL CANCER
  62. GEMZAR [Concomitant]
     Active Substance: GEMCITABINE HYDROCHLORIDE
     Indication: PRODUCT USED FOR UNKNOWN INDICATION
     Dosage: C1D1
     Dates: start: 20201211
  63. IBRUTINIB [Suspect]
     Active Substance: IBRUTINIB
     Route: 048
     Dates: start: 20191021, end: 20191022
  64. IBRUTINIB [Suspect]
     Active Substance: IBRUTINIB
     Route: 048
     Dates: start: 2020
  65. MABTHERA SC [Concomitant]
     Indication: CHRONIC LYMPHOCYTIC LEUKAEMIA
     Route: 058
     Dates: start: 20191120, end: 20191120
  66. MABTHERA SC [Concomitant]
     Route: 058
     Dates: start: 20191225, end: 20191225
  67. DIFLUCAN [Concomitant]
     Active Substance: FLUCONAZOLE
     Route: 065
     Dates: start: 20210409, end: 20210416
  68. SANDIMMUN NEORAL [Concomitant]
     Active Substance: CYCLOSPORINE
     Route: 048
     Dates: start: 20200424, end: 20200430
  69. SANDIMMUN NEORAL [Concomitant]
     Active Substance: CYCLOSPORINE
     Route: 048
     Dates: start: 20200508, end: 20200604
  70. MEGESTROL ACETATE. [Concomitant]
     Active Substance: MEGESTROL ACETATE
     Indication: STOMATITIS
     Route: 048
     Dates: start: 20200731, end: 20200813
  71. MEGESTROL ACETATE. [Concomitant]
     Active Substance: MEGESTROL ACETATE
     Indication: PROPHYLAXIS
     Route: 048
     Dates: start: 20200821
  72. DIPHENHYDRAMINE HCL [Concomitant]
     Active Substance: DIPHENHYDRAMINE HYDROCHLORIDE
     Indication: PROPHYLAXIS
     Route: 042
     Dates: start: 20201231, end: 20201231
  73. SOLU?MEDROL [Concomitant]
     Active Substance: METHYLPREDNISOLONE SODIUM SUCCINATE
     Indication: CYTOKINE RELEASE SYNDROME
     Dates: start: 20201026, end: 20201027
  74. IBRUTINIB [Suspect]
     Active Substance: IBRUTINIB
     Route: 048
     Dates: start: 20200717, end: 20200827
  75. VFEND [Concomitant]
     Active Substance: VORICONAZOLE
     Dosage: 1
     Route: 048
     Dates: start: 20191024, end: 20191027
  76. GRANOCYTE [Concomitant]
     Active Substance: LENOGRASTIM
     Route: 058
     Dates: start: 20200612, end: 20200612
  77. GRANOCYTE [Concomitant]
     Active Substance: LENOGRASTIM
     Route: 058
     Dates: start: 20200619, end: 20200619
  78. GRANOCYTE [Concomitant]
     Active Substance: LENOGRASTIM
     Route: 058
     Dates: start: 20200619, end: 20200620
  79. BFLUID [Concomitant]
     Active Substance: AMINO ACIDS\DEXTROSE\ELECTROLYTES NOS\VITAMINS
     Indication: PROPHYLAXIS
     Dates: start: 20190930, end: 20191022
  80. MYCOSTATIN [Concomitant]
     Active Substance: NYSTATIN
     Indication: PROPHYLAXIS
     Route: 048
     Dates: start: 20191008, end: 20191112
  81. NINCORT [Concomitant]
     Indication: STOMATITIS
     Route: 065
     Dates: start: 20201231, end: 20210107
  82. BAKTAR [Concomitant]
     Active Substance: SULFAMETHOXAZOLE\TRIMETHOPRIM
     Dosage: 1 TAB
     Route: 048
     Dates: start: 20201222, end: 20201224
  83. BAKTAR [Concomitant]
     Active Substance: SULFAMETHOXAZOLE\TRIMETHOPRIM
     Route: 065
     Dates: start: 20201222, end: 20210416
  84. VALTREX [Concomitant]
     Active Substance: VALACYCLOVIR HYDROCHLORIDE
     Route: 048
     Dates: start: 20201225, end: 20201230
  85. DORISON [DEXAMETHASONE] [Concomitant]
     Route: 048
     Dates: start: 20191127, end: 20191211
  86. ARTELAC [ACETYLSALICYLIC ACID] [Concomitant]
     Active Substance: ASPIRIN
     Route: 047
     Dates: start: 20200605, end: 20200611
  87. PARAMOL [PARACETAMOL] [Concomitant]
     Route: 048
     Dates: start: 20201222, end: 20201226
  88. MABTHERA SC [Concomitant]
     Route: 058
     Dates: start: 20210108, end: 20210108
  89. CELLCEPT [Concomitant]
     Active Substance: MYCOPHENOLATE MOFETIL\MYCOPHENOLATE MOFETIL HYDROCHLORIDE
     Indication: PROPHYLAXIS
     Route: 065
     Dates: start: 2020, end: 20200417
  90. IMMUNOGLOBULIN HUMAN [Concomitant]
     Active Substance: HUMAN IMMUNOGLOBULIN G
     Dates: start: 20200529, end: 20200529
  91. IVIGLOB EX [Concomitant]
     Active Substance: HUMAN IMMUNOGLOBULIN G
     Indication: PRODUCT USED FOR UNKNOWN INDICATION
     Route: 065
     Dates: start: 202003, end: 202003
  92. VINBLASTINE [Concomitant]
     Active Substance: VINBLASTINE
     Indication: PRODUCT USED FOR UNKNOWN INDICATION
     Dates: start: 20201120
  93. GRANOCYTE [Concomitant]
     Active Substance: LENOGRASTIM
     Route: 058
     Dates: start: 20200602, end: 20200602
  94. GRANOCYTE [Concomitant]
     Active Substance: LENOGRASTIM
     Route: 058
     Dates: start: 20200624, end: 20200624
  95. GRANOCYTE [Concomitant]
     Active Substance: LENOGRASTIM
     Route: 058
     Dates: start: 20201225, end: 20201225
  96. GRANOCYTE [Concomitant]
     Active Substance: LENOGRASTIM
     Route: 058
     Dates: start: 20200529, end: 20200529
  97. BAKTAR [Concomitant]
     Active Substance: SULFAMETHOXAZOLE\TRIMETHOPRIM
     Dosage: 1 TAB
     Route: 048
     Dates: start: 20201225
  98. VALTREX [Concomitant]
     Active Substance: VALACYCLOVIR HYDROCHLORIDE
     Indication: PROPHYLAXIS
     Route: 048
     Dates: start: 20191030, end: 20191126
  99. NEXIUM [Concomitant]
     Active Substance: ESOMEPRAZOLE MAGNESIUM
     Indication: GASTRIC ULCER
     Route: 048
     Dates: start: 20191030
  100. DORISON [DEXAMETHASONE] [Concomitant]
     Indication: PROPHYLAXIS
     Dosage: 2 TAB
     Route: 048
     Dates: start: 20191030, end: 20191105
  101. ARTELAC [ACETYLSALICYLIC ACID] [Concomitant]
     Active Substance: ASPIRIN
     Route: 047
     Dates: start: 20200731
  102. PARAMOL [PARACETAMOL] [Concomitant]
     Route: 048
     Dates: start: 20200207, end: 20200213
  103. VENCLEXTA [Concomitant]
     Active Substance: VENETOCLAX
     Indication: CHRONIC LYMPHOCYTIC LEUKAEMIA
     Route: 048
     Dates: start: 20200108, end: 20200416
  104. VENCLEXTA [Concomitant]
     Active Substance: VENETOCLAX
     Route: 048
     Dates: start: 20200417, end: 20200430
  105. SENNAPUR [Concomitant]
     Indication: PROPHYLAXIS
     Route: 048
     Dates: start: 20200417, end: 20200507
  106. SENNAPUR [Concomitant]
     Route: 048
     Dates: start: 20200619
  107. ZADITEN [Concomitant]
     Active Substance: KETOTIFEN FUMARATE
     Indication: PRODUCT USED FOR UNKNOWN INDICATION
     Route: 047
     Dates: start: 20200515, end: 20200521
  108. FLUTICASONE. [Concomitant]
     Active Substance: FLUTICASONE
     Indication: EPISTAXIS
     Dosage: 1 PUFF
     Dates: start: 20201222, end: 20201226
  109. R?HYPER CVAD?B [Concomitant]
     Indication: PRODUCT USED FOR UNKNOWN INDICATION
  110. IBRUTINIB [Suspect]
     Active Substance: IBRUTINIB
     Indication: CHRONIC LYMPHOCYTIC LEUKAEMIA
     Route: 048
     Dates: start: 20191016, end: 20191018
  111. IBRUTINIB [Suspect]
     Active Substance: IBRUTINIB
     Route: 048
     Dates: start: 20200108, end: 20200206
  112. IBRUTINIB [Suspect]
     Active Substance: IBRUTINIB
     Route: 048
     Dates: start: 20200207, end: 20210416
  113. IBRUTINIB [Suspect]
     Active Substance: IBRUTINIB
     Route: 048
     Dates: start: 20200703, end: 20200716
  114. ACYCLOVIR [ACICLOVIR] [Concomitant]
     Active Substance: ACYCLOVIR
     Indication: APHTHOUS ULCER
     Route: 065
     Dates: start: 20191014, end: 20191026
  115. GRANOCYTE [Concomitant]
     Active Substance: LENOGRASTIM
     Route: 058
     Dates: start: 20200522, end: 20200522
  116. GRANOCYTE [Concomitant]
     Active Substance: LENOGRASTIM
     Route: 058
     Dates: start: 20200703, end: 20200703
  117. TEARS NATURALE [DEXTRAN 70;HYPROMELLOSE] [Concomitant]
     Indication: PRODUCT USED FOR UNKNOWN INDICATION
     Route: 047
     Dates: start: 20200717, end: 20200813
  118. NINCORT [Concomitant]
     Indication: MOUTH ULCERATION
     Route: 065
     Dates: start: 20191025, end: 20191026
  119. VALTREX [Concomitant]
     Active Substance: VALACYCLOVIR HYDROCHLORIDE
     Route: 048
     Dates: start: 20200731, end: 20201221
  120. PARAMOL [PARACETAMOL] [Concomitant]
     Route: 048
     Dates: start: 20191225, end: 20191225
  121. AUGMENTIN [Concomitant]
     Active Substance: AMOXICILLIN\CLAVULANATE POTASSIUM
     Indication: PROPHYLAXIS
     Route: 048
     Dates: start: 20191127, end: 20191211
  122. SENNAPUR [Concomitant]
     Indication: PRODUCT USED FOR UNKNOWN INDICATION
     Route: 048
     Dates: start: 20200417, end: 20200507
  123. SANDIMMUN NEORAL [Concomitant]
     Active Substance: CYCLOSPORINE
     Route: 048
     Dates: start: 20200417, end: 20200423
  124. IMOLEX [Concomitant]
     Indication: DIARRHOEA
     Route: 048
     Dates: start: 20200508, end: 20200521
  125. LACTULOSE. [Concomitant]
     Active Substance: LACTULOSE
     Indication: PRODUCT USED FOR UNKNOWN INDICATION
     Route: 048
     Dates: start: 20200717, end: 20200730
  126. PROGRAF [Concomitant]
     Active Substance: TACROLIMUS
     Indication: PRODUCT USED FOR UNKNOWN INDICATION
     Route: 048
     Dates: start: 20200717, end: 20200813
  127. KYTRIL [Concomitant]
     Active Substance: GRANISETRON HYDROCHLORIDE
     Indication: PROPHYLAXIS
     Route: 042
     Dates: start: 20210108, end: 20210108
  128. BETAMETHASONE VALERATE. [Concomitant]
     Active Substance: BETAMETHASONE VALERATE
     Indication: PROPHYLAXIS
     Dates: start: 20210115
  129. FLUDARA [Concomitant]
     Active Substance: FLUDARABINE PHOSPHATE
     Indication: PRODUCT USED FOR UNKNOWN INDICATION
     Route: 065
     Dates: start: 202003, end: 202003
  130. NIVOLUMAB [Concomitant]
     Active Substance: NIVOLUMAB
     Dosage: C2D1
     Dates: start: 20201003
  131. GEMZAR [Concomitant]
     Active Substance: GEMCITABINE HYDROCHLORIDE
     Dosage: C2D1
     Dates: start: 20201221
  132. IBRUTINIB [Suspect]
     Active Substance: IBRUTINIB
     Route: 048
     Dates: start: 20191023, end: 20191025
  133. IBRUTINIB [Suspect]
     Active Substance: IBRUTINIB
     Route: 048
     Dates: start: 20200612, end: 20200618
  134. ACYCLOVIR [ACICLOVIR] [Concomitant]
     Active Substance: ACYCLOVIR
     Indication: APHTHOUS ULCER
     Route: 065
     Dates: start: 20191007, end: 20191018
  135. GRANOCYTE [Concomitant]
     Active Substance: LENOGRASTIM
     Indication: PRODUCT USED FOR UNKNOWN INDICATION
     Route: 058
     Dates: start: 20191025, end: 20191025
  136. GRANOCYTE [Concomitant]
     Active Substance: LENOGRASTIM
     Route: 058
     Dates: start: 20200522, end: 20200522
  137. BAKTAR [Concomitant]
     Active Substance: SULFAMETHOXAZOLE\TRIMETHOPRIM
     Indication: PROPHYLAXIS
     Dosage: 1 TAB
     Route: 048
     Dates: start: 20191030, end: 20200416
  138. BAKTAR [Concomitant]
     Active Substance: SULFAMETHOXAZOLE\TRIMETHOPRIM
     Indication: PROPHYLAXIS
     Dosage: 1 TAB
     Route: 048
     Dates: start: 20200417, end: 20201222
  139. VALTREX [Concomitant]
     Active Substance: VALACYCLOVIR HYDROCHLORIDE
     Route: 048
     Dates: start: 20200717, end: 20200730
  140. VALTREX [Concomitant]
     Active Substance: VALACYCLOVIR HYDROCHLORIDE
     Route: 048
     Dates: start: 20201224, end: 20201224
  141. B.C. [Concomitant]
     Route: 065
     Dates: start: 20201209, end: 20201221
  142. ARTELAC [ACETYLSALICYLIC ACID] [Concomitant]
     Active Substance: ASPIRIN
     Route: 047
     Dates: start: 20191127, end: 20200213
  143. DIFLUCAN [Concomitant]
     Active Substance: FLUCONAZOLE
     Route: 065
     Dates: start: 20200207
  144. RITUXIMAB. [Concomitant]
     Active Substance: RITUXIMAB
     Indication: CHRONIC LYMPHOCYTIC LEUKAEMIA
     Dates: start: 20191021

REACTIONS (30)
  - Gastric ulcer [Not Recovered/Not Resolved]
  - Catheter site haematoma [Not Recovered/Not Resolved]
  - Epistaxis [Recovered/Resolved]
  - Limb mass [Recovered/Resolved]
  - Chronic graft versus host disease [Recovered/Resolved]
  - Abdominal pain [Recovered/Resolved]
  - Pyrexia [Recovered/Resolved]
  - Nasal neoplasm [Recovered/Resolved]
  - Lymphadenopathy [Not Recovered/Not Resolved]
  - Colitis [Recovered/Resolved]
  - Hospitalisation [Recovered/Resolved]
  - Diffuse large B-cell lymphoma [Not Recovered/Not Resolved]
  - Erythema [Recovered/Resolved]
  - Ecchymosis [Recovered/Resolved]
  - Photopsia [Recovered/Resolved]
  - Febrile neutropenia [Recovered/Resolved]
  - Sinusitis fungal [Not Recovered/Not Resolved]
  - Chest wall tumour [Not Recovered/Not Resolved]
  - Neutropenia [Recovered/Resolved]
  - Bacterial sepsis [Recovered/Resolved]
  - Chronic lymphocytic leukaemia [Unknown]
  - Dry mouth [Recovered/Resolved]
  - Diarrhoea [Recovered/Resolved]
  - Abdominal mass [Not Recovered/Not Resolved]
  - Hydronephrosis [Not Recovered/Not Resolved]
  - Aphthous ulcer [Recovered/Resolved]
  - Stomatitis [Not Recovered/Not Resolved]
  - Vertigo [Recovered/Resolved]
  - Cytokine release syndrome [Recovered/Resolved]
  - Polyuria [Recovered/Resolved]

NARRATIVE: CASE EVENT DATE: 201910
